FAERS Safety Report 5031157-X (Version None)
Quarter: 2006Q2

REPORT INFORMATION
  Report Type: 
  Country: None (occurrence: None)
  Receive Date: 20060615
  Receipt Date: 20060530
  Transmission Date: 20061013
  Serious: Yes (Other)
  Sender: FDA-Public Use
  Company Number: 14154

PATIENT
  Age: 53 Year
  Sex: Male

DRUGS (3)
  1. MITOXANTRONE [Suspect]
     Indication: LYMPHOMA
  2. DEXAMETHASONE TAB [Suspect]
     Indication: LYMPHOMA
  3. FLUDARABINE [Suspect]

REACTIONS (2)
  - OSTEONECROSIS [None]
  - STEROID WITHDRAWAL SYNDROME [None]
